FAERS Safety Report 7316113-0 (Version None)
Quarter: 2011Q1

REPORT INFORMATION
  Report Type: 
  Country: None (occurrence: None)
  Receive Date: 20110225
  Receipt Date: 20110208
  Transmission Date: 20110831
  Serious: Yes (Other)
  Sender: FDA-Public Use
  Company Number: FR-PFIZER INC-FR-WYE-G06250110

PATIENT
  Age: 39 Year
  Sex: Female

DRUGS (2)
  1. LYRICA [Suspect]
     Dosage: UNK
     Route: 048
     Dates: start: 20080401, end: 20080510
  2. EFFEXOR [Suspect]
     Dosage: UNKNOWN
     Route: 048

REACTIONS (2)
  - BLIGHTED OVUM [None]
  - DRUG EXPOSURE DURING PREGNANCY [None]
